FAERS Safety Report 23506939 (Version 1)
Quarter: 2024Q1

REPORT INFORMATION
  Report Type: Spontaneous
  Country: JP (occurrence: JP)
  Receive Date: 20240209
  Receipt Date: 20240209
  Transmission Date: 20240410
  Serious: Yes (Hospitalization)
  Sender: FDA-Public Use
  Company Number: JP-BAYER-2023A021931

PATIENT
  Age: 67 Year
  Sex: Male
  Weight: 70 kg

DRUGS (2)
  1. STIVARGA [Suspect]
     Active Substance: REGORAFENIB
     Indication: Rectal cancer
     Dosage: 160 MG, QD
     Dates: start: 20230125
  2. VALSARTAN [Concomitant]
     Active Substance: VALSARTAN
     Indication: Hypertension
     Dosage: DAILY DOSE 80 MG
     Route: 048
     Dates: start: 20200903

REACTIONS (11)
  - Gamma-glutamyltransferase increased [Recovered/Resolved]
  - Hepatic function abnormal [Recovered/Resolved]
  - Alanine aminotransferase increased [Recovered/Resolved]
  - Aspartate aminotransferase increased [Recovered/Resolved]
  - Blood bilirubin increased [Recovered/Resolved]
  - Bilirubin conjugated increased [Recovered/Resolved]
  - Malaise [Recovered/Resolved]
  - Pruritus [Recovered/Resolved]
  - Yellow skin [Recovered/Resolved]
  - Ocular icterus [Recovered/Resolved]
  - Bilirubinuria [Recovered/Resolved]

NARRATIVE: CASE EVENT DATE: 20230221
